FAERS Safety Report 10219289 (Version 2)
Quarter: 2014Q2

REPORT INFORMATION
  Report Type: Other
  Country: CA (occurrence: CA)
  Receive Date: 20140605
  Receipt Date: 20140605
  Transmission Date: 20141212
  Serious: Yes (Hospitalization, Other)
  Sender: FDA-Public Use
  Company Number: CA-GSKPPD-2014GSK007616

PATIENT
  Age: 75 Year
  Sex: Male

DRUGS (4)
  1. AVANDIA [Suspect]
     Indication: DIABETES MELLITUS
     Dosage: DATES OF AVANDIA USE COULD NOT BE CONFIRMED IN RECORDS REVIEWED.
     Route: 048
  2. ADALAT XL [Concomitant]
  3. OLMETEC [Concomitant]
  4. ENTERIC COATED ASPIRIN [Concomitant]

REACTIONS (5)
  - Atrioventricular block [Recovered/Resolved]
  - Sick sinus syndrome [Recovered/Resolved]
  - Bradycardia [None]
  - Implantable defibrillator insertion [None]
  - Angina pectoris [Recovered/Resolved]
